FAERS Safety Report 5153993-1 (Version None)
Quarter: 2006Q4

REPORT INFORMATION
  Report Type: 
  Country: None (occurrence: None)
  Receive Date: 20061120
  Receipt Date: 20061116
  Transmission Date: 20070319
  Serious: Yes (Other)
  Sender: FDA-Public Use
  Company Number: BPC-SR-06-199

PATIENT
  Sex: Male

DRUGS (2)
  1. WELLBUTRIN SR [Suspect]
     Indication: ATTENTION DEFICIT/HYPERACTIVITY DISORDER
     Dosage: 150MG TWICE PER DAY
     Route: 048
  2. OPIOID [Suspect]

REACTIONS (2)
  - CONVULSION [None]
  - DRUG DIVERSION [None]
